FAERS Safety Report 14967306 (Version 1)
Quarter: 2018Q3

REPORT INFORMATION
  Report Type: Spontaneous
  Country: CN (occurrence: CN)
  Receive Date: 20180604
  Receipt Date: 20180604
  Transmission Date: 20181010
  Serious: Yes (Death, Other)
  Sender: FDA-Public Use
  Company Number: CN-CHEPLA-C20180127

PATIENT

DRUGS (7)
  1. CYTARABINE. [Suspect]
     Active Substance: CYTARABINE
     Indication: ACUTE PROMYELOCYTIC LEUKAEMIA
     Dosage: 100MG/M2/DAY ON DAYS 1?7
  2. DAUNORUBICIN [Suspect]
     Active Substance: DAUNORUBICIN
     Indication: ACUTE PROMYELOCYTIC LEUKAEMIA
     Dosage: 45MG/M2/DAY ON DAYS 1?3
  3. ALL?TRANS RETINOIC ACID, ATRA [Suspect]
     Active Substance: TRETINOIN
     Indication: ACUTE PROMYELOCYTIC LEUKAEMIA
     Dosage: ATRA (20MG/M2/DAY) AS INDUCTION TREATMENT IMMEDIATELY FOLLOWING DIAGNOSIS UNTIL CR WAS ACHIEVED
  4. ARSENIC TRIOXIDE, ATO [Suspect]
     Active Substance: ARSENIC TRIOXIDE
     Indication: ACUTE PROMYELOCYTIC LEUKAEMIA
  5. HYDROXYCARBAMIDE [Suspect]
     Active Substance: HYDROXYUREA
     Indication: LEUKOCYTOSIS
     Dosage: BEFORE OR AFTER CHEMOTHERAPY TO REDUCE WBC COUNT
  6. HOMOHARRINGTONINE [Suspect]
     Active Substance: OMACETAXINE MEPESUCCINATE
     Indication: ACUTE PROMYELOCYTIC LEUKAEMIA
     Dosage: 2MG/M2/DAY ON DAYS 1?5 AFTER DIAGNOSIS
  7. IDARUBICIN [Suspect]
     Active Substance: IDARUBICIN
     Indication: ACUTE PROMYELOCYTIC LEUKAEMIA
     Dosage: 8MG/M2/DAY ON DAYS 1?3 AFTER DIAGNOSIS

REACTIONS (7)
  - Leukocytosis [Fatal]
  - Arrhythmia [Fatal]
  - Death [Fatal]
  - Disseminated intravascular coagulation [Unknown]
  - Acute promyelocytic leukaemia differentiation syndrome [Fatal]
  - Haemorrhage [Fatal]
  - Infection [Fatal]
